FAERS Safety Report 5566535-3 (Version None)
Quarter: 2007Q4

REPORT INFORMATION
  Report Type: 
  Country: None (occurrence: None)
  Receive Date: 20071219
  Receipt Date: 20071207
  Transmission Date: 20080405
  Serious: Yes (Hospitalization)
  Sender: FDA-Public Use
  Company Number: DE-NOVOPROD-270048

PATIENT
  Sex: Female
  Weight: 98.08 kg

DRUGS (10)
  1. INSULIN DETEMIR FLEXPEN [Suspect]
     Indication: INSULIN-REQUIRING TYPE II DIABETES MELLITUS
     Dosage: 60 U, QD
     Route: 058
     Dates: start: 20070424
  2. ASPIRIN [Concomitant]
     Dosage: 100 MG, QD
     Route: 048
     Dates: start: 19890101
  3. AMLODIPIN                          /00972401/ [Concomitant]
     Dosage: 10 MG, QD
     Route: 048
     Dates: start: 20060101
  4. TRIAMPTEREN [Concomitant]
     Dosage: 10 MG, QD
     Route: 048
     Dates: start: 20060101
  5. PANTOZOL                           /01263202/ [Concomitant]
     Dosage: 40 MG, QD
     Route: 048
     Dates: start: 20040101
  6. THEOPHYLLINE [Concomitant]
     Dosage: 200 MG, QD
     Route: 048
     Dates: start: 19920101
  7. BUDESONIDE [Concomitant]
     Dosage: 200 MG, QD
     Route: 048
     Dates: start: 19920101
  8. DIOVAN                             /01319601/ [Concomitant]
     Dosage: 160 MG, QD
     Route: 048
     Dates: start: 20050101
  9. TORSEMIDE [Concomitant]
     Dosage: 10 MG, QD
     Route: 048
     Dates: start: 20060101
  10. MOXONIDIN [Concomitant]
     Dosage: .4 MG, QD
     Route: 048
     Dates: start: 20050101

REACTIONS (1)
  - FRACTURE [None]
